FAERS Safety Report 13726771 (Version 1)
Quarter: 2017Q3

REPORT INFORMATION
  Report Type: Spontaneous
  Country: US (occurrence: US)
  Receive Date: 20170707
  Receipt Date: 20170707
  Transmission Date: 20171127
  Serious: Yes (Disabling, Other)
  Sender: FDA-Public Use
  Company Number: None

PATIENT
  Age: 47 Year
  Sex: Female
  Weight: 48.15 kg

DRUGS (3)
  1. LISINOPRIL. [Concomitant]
     Active Substance: LISINOPRIL
  2. SERTRALINE [Suspect]
     Active Substance: SERTRALINE HYDROCHLORIDE
     Indication: ANXIETY
     Dosage: ?          OTHER STRENGTH:MG;QUANTITY:1 TABLET(S);?
     Route: 048
     Dates: start: 20170428, end: 20170703
  3. ADVIL [Concomitant]
     Active Substance: IBUPROFEN

REACTIONS (19)
  - Vertigo [None]
  - Confusional state [None]
  - Unevaluable event [None]
  - Headache [None]
  - Nervousness [None]
  - Heart rate irregular [None]
  - Flushing [None]
  - Feeling drunk [None]
  - Tremor [None]
  - Dizziness [None]
  - Restlessness [None]
  - Vomiting [None]
  - Rash [None]
  - Feeling abnormal [None]
  - Dry mouth [None]
  - Nausea [None]
  - Malaise [None]
  - Mydriasis [None]
  - Hypertension [None]

NARRATIVE: CASE EVENT DATE: 20170428
